FAERS Safety Report 18574899 (Version 3)
Quarter: 2025Q2

REPORT INFORMATION
  Report Type: Spontaneous
  Country: FR (occurrence: FR)
  Receive Date: 20201203
  Receipt Date: 20250523
  Transmission Date: 20250717
  Serious: Yes (Life-Threatening, Hospitalization, Disabling, Other)
  Sender: BAYER HEALTHCARE PHARMACEUTICALS INC.
  Company Number: FR-BAYER-2015-262775

PATIENT
  Age: 39 Year
  Sex: Female
  Weight: 73 kg

DRUGS (1)
  1. DROSPIRENONE\ETHINYL ESTRADIOL [Suspect]
     Active Substance: DROSPIRENONE\ETHINYL ESTRADIOL
     Indication: Oral contraception
     Route: 048
     Dates: start: 2013, end: 201303

REACTIONS (24)
  - Ischaemic stroke [Recovered/Resolved with Sequelae]
  - Cerebral infarction [Recovered/Resolved with Sequelae]
  - Carotid artery occlusion [Recovered/Resolved with Sequelae]
  - Paradoxical embolism [Recovered/Resolved with Sequelae]
  - Pulmonary embolism [Recovered/Resolved with Sequelae]
  - Renal infarct [None]
  - Cardiac ventricular thrombosis [None]
  - Pelvic venous thrombosis [Recovered/Resolved with Sequelae]
  - Motor dysfunction [None]
  - Hemiplegia [None]
  - Seizure [None]
  - Epilepsy [None]
  - Neurologic neglect syndrome [Recovered/Resolved with Sequelae]
  - Muscle spasticity [None]
  - Bladder disorder [None]
  - Dysphagia [None]
  - Arthralgia [None]
  - Blindness day [None]
  - Photophobia [None]
  - Cerebral haemorrhage [None]
  - Brain oedema [None]
  - Brain herniation [None]
  - Pneumonia staphylococcal [None]
  - Visual field defect [None]

NARRATIVE: CASE EVENT DATE: 20130301
